FAERS Safety Report 14217836 (Version 1)
Quarter: 2017Q4

REPORT INFORMATION
  Report Type: Spontaneous
  Country: US (occurrence: US)
  Receive Date: 20171123
  Receipt Date: 20171123
  Transmission Date: 20180321
  Serious: No
  Sender: FDA-Public Use
  Company Number: US-BEH-2017085273

PATIENT
  Age: 63 Year
  Sex: Female

DRUGS (2)
  1. HIZENTRA [Suspect]
     Active Substance: HUMAN IMMUNOGLOBULIN G
     Indication: IMMUNODEFICIENCY COMMON VARIABLE
     Dosage: 40 ML, QW
     Route: 058
  2. HIZENTRA [Suspect]
     Active Substance: HUMAN IMMUNOGLOBULIN G
     Dosage: UNK
     Route: 058
     Dates: start: 20171112, end: 20171112

REACTIONS (4)
  - Pyrexia [Not Recovered/Not Resolved]
  - Administration site pain [Not Recovered/Not Resolved]
  - Administration site erythema [Not Recovered/Not Resolved]
  - Administration site swelling [Not Recovered/Not Resolved]

NARRATIVE: CASE EVENT DATE: 20171112
